FAERS Safety Report 25019504 (Version 1)
Quarter: 2025Q1

REPORT INFORMATION
  Report Type: Spontaneous
  Country: GB (occurrence: GB)
  Receive Date: 20250227
  Receipt Date: 20250227
  Transmission Date: 20250408
  Serious: Yes (Other)
  Sender: GLAXOSMITHKLINE
  Company Number: None

PATIENT

DRUGS (1)
  1. TRELEGY ELLIPTA [Suspect]
     Active Substance: FLUTICASONE FUROATE\UMECLIDINIUM BROMIDE\VILANTEROL TRIFENATATE
     Indication: Emphysema
     Route: 065
     Dates: start: 20241107

REACTIONS (2)
  - Rash pruritic [Not Recovered/Not Resolved]
  - Keratosis pilaris [Not Recovered/Not Resolved]

NARRATIVE: CASE EVENT DATE: 20241118
